FAERS Safety Report 8835777 (Version 2)
Quarter: 2013Q1

REPORT INFORMATION
  Report Type: Spontaneous
  Country: DE (occurrence: DE)
  Receive Date: 20121011
  Receipt Date: 20130111
  Transmission Date: 20140127
  Serious: Yes (Other)
  Sender: FDA-Public Use
  Company Number: DE-UCBSA-068384

PATIENT
  Age: 54 Year
  Sex: Male

DRUGS (3)
  1. VIMPAT [Suspect]
     Route: 048
     Dates: start: 201208
  2. VIMPAT [Suspect]
     Dosage: DAILY DOSE: 150 MG; 1X100 MG IN THE MORNING AND 1X50 MG IN THE EVENING
     Route: 048
  3. CONCOR COR [Concomitant]
     Indication: BLOOD PRESSURE INCREASED
     Dosage: PREVIOUSLY REGULAR; INTAKE IF IT IS NECESSARY; UNKNOWN DOSE

REACTIONS (7)
  - Epilepsy [Recovering/Resolving]
  - Syncope [Unknown]
  - Blood pressure increased [Unknown]
  - Rash pustular [Unknown]
  - Skin burning sensation [Unknown]
  - Diarrhoea [Not Recovered/Not Resolved]
  - Medication error [Unknown]
